FAERS Safety Report 7608859-1 (Version None)
Quarter: 2011Q3

REPORT INFORMATION
  Report Type: 
  Country: None (occurrence: None)
  Receive Date: 20110714
  Receipt Date: 20110711
  Transmission Date: 20111222
  Serious: Yes (Hospitalization, Other)
  Sender: FDA-Public Use
  Company Number: US-PFIZER INC-2011069799

PATIENT
  Sex: Male

DRUGS (4)
  1. CHANTIX [Suspect]
     Indication: SMOKING CESSATION THERAPY
     Dosage: STARTING MONTH PACK AND 1MG CONTINUING MONTH PACK
     Dates: start: 20070730, end: 20071017
  2. HYDROCODONE [Concomitant]
     Indication: PAIN
     Dosage: UNK
     Dates: start: 20060101, end: 20090101
  3. PROPOXYPHENE HYDROCHLORIDE [Concomitant]
     Indication: PAIN
     Dosage: UNK
     Dates: start: 20040101, end: 20090101
  4. CLOBETASOL [Concomitant]
     Indication: PSORIASIS
     Dosage: UNK
     Dates: start: 20050101, end: 20090101

REACTIONS (3)
  - CONVULSION [None]
  - DEPRESSION [None]
  - SUICIDAL IDEATION [None]
